FAERS Safety Report 4703057-3 (Version None)
Quarter: 2005Q2

REPORT INFORMATION
  Report Type: 
  Country: None (occurrence: None)
  Receive Date: 20050628
  Receipt Date: 20050628
  Transmission Date: 20051028
  Serious: Yes (Hospitalization)
  Sender: FDA-Public Use
  Company Number: None

PATIENT
  Age: 61 Year
  Sex: Female
  Weight: 100.8 kg

DRUGS (15)
  1. OLANZAPINE [Suspect]
     Indication: AGITATION
     Dosage: 10 MG Q6H PRN
  2. OXYCODONE HCL [Concomitant]
  3. BISACODYL [Concomitant]
  4. TYLENOL [Concomitant]
  5. WARFARIN [Concomitant]
  6. ABILIFY [Concomitant]
  7. CYMBALTA [Concomitant]
  8. LIPITOR [Concomitant]
  9. DEPAKOTE [Concomitant]
  10. MULTI-VITAMIN [Concomitant]
  11. SENNA [Concomitant]
  12. PRILOSEC [Concomitant]
  13. PAXIL [Concomitant]
  14. BENZTROPINE [Concomitant]
  15. LEVAQUIN [Concomitant]

REACTIONS (3)
  - LOSS OF CONSCIOUSNESS [None]
  - MUSCLE RIGIDITY [None]
  - PYREXIA [None]
